FAERS Safety Report 16403151 (Version 2)
Quarter: 2019Q2

REPORT INFORMATION
  Report Type: Report from Study
  Country: CA (occurrence: CA)
  Receive Date: 20190607
  Receipt Date: 20190614
  Transmission Date: 20190711
  Serious: Yes (Other)
  Sender: FDA-Public Use
  Company Number: CA-ROCHE-2329495

PATIENT
  Sex: Female

DRUGS (4)
  1. CESAMET [Concomitant]
     Active Substance: NABILONE
     Route: 065
  2. MODAFINIL. [Concomitant]
     Active Substance: MODAFINIL
     Dosage: 100 MG ;ONGOING: YES
     Route: 065
     Dates: start: 20190401
  3. OCREVUS [Suspect]
     Active Substance: OCRELIZUMAB
     Indication: RELAPSING-REMITTING MULTIPLE SCLEROSIS
     Dosage: 300 MG AT DAY 0 AND 14, THEN 600 MG EVERY 6 MONTH
     Route: 042
     Dates: start: 20181112
  4. TRAZODONE [Concomitant]
     Active Substance: TRAZODONE HYDROCHLORIDE
     Dosage: ONGOING YES
     Route: 065

REACTIONS (4)
  - Pyrexia [Recovered/Resolved]
  - Nasopharyngitis [Recovering/Resolving]
  - Stress [Unknown]
  - Pneumonia [Unknown]

NARRATIVE: CASE EVENT DATE: 2019
